FAERS Safety Report 10424620 (Version 4)
Quarter: 2015Q1

REPORT INFORMATION
  Report Type: Report from Study
  Country: CO (occurrence: CO)
  Receive Date: 20140902
  Receipt Date: 20150126
  Transmission Date: 20150720
  Serious: Yes (Death, Hospitalization, Other)
  Sender: FDA-Public Use
  Company Number: CO-ALEXION PHARMACEUTICALS INC-A201403252

PATIENT

DRUGS (7)
  1. ACICLOVIR [Concomitant]
     Active Substance: ACYCLOVIR
     Indication: PRODUCT USED FOR UNKNOWN INDICATION
     Route: 065
  2. POSACONAZOLE [Concomitant]
     Active Substance: POSACONAZOLE
     Indication: PRODUCT USED FOR UNKNOWN INDICATION
     Route: 065
  3. VANCOMYCIN [Concomitant]
     Active Substance: VANCOMYCIN
     Indication: PRODUCT USED FOR UNKNOWN INDICATION
     Route: 065
  4. SOLIRIS [Suspect]
     Active Substance: ECULIZUMAB
     Indication: PAROXYSMAL NOCTURNAL HAEMOGLOBINURIA
     Dosage: 900 MG, Q2W
     Route: 042
     Dates: start: 201208, end: 20141119
  5. TRIMETHOPRIM SULFA [Concomitant]
     Active Substance: TRIMETHOPRIM SULFATE
     Indication: PRODUCT USED FOR UNKNOWN INDICATION
     Route: 065
  6. CYCLOSPORIN [Concomitant]
     Active Substance: CYCLOSPORINE
     Indication: PRODUCT USED FOR UNKNOWN INDICATION
     Route: 065
  7. PREDNISONE. [Concomitant]
     Active Substance: PREDNISONE
     Indication: PRODUCT USED FOR UNKNOWN INDICATION
     Route: 065

REACTIONS (7)
  - Dizziness [Not Recovered/Not Resolved]
  - Cerebral haemorrhage [Fatal]
  - Asthenia [Not Recovered/Not Resolved]
  - Haemoglobin abnormal [Recovering/Resolving]
  - Aplastic anaemia [Not Recovered/Not Resolved]
  - Coma [Not Recovered/Not Resolved]
  - Multi-organ failure [Fatal]

NARRATIVE: CASE EVENT DATE: 2014
